FAERS Safety Report 15524259 (Version 1)
Quarter: 2018Q4

REPORT INFORMATION
  Report Type: Spontaneous
  Country: None (occurrence: US)
  Receive Date: 20181019
  Receipt Date: 20181019
  Transmission Date: 20190205
  Serious: No
  Sender: FDA-Public Use
  Company Number: US-PRESTIGE BRANDS -2056449

PATIENT

DRUGS (1)
  1. MONISTAT 1 COMBINATION PACK TRIPLE ACTION [Suspect]
     Active Substance: MICONAZOLE NITRATE

REACTIONS (7)
  - Chemical burn of skin [None]
  - Vulvovaginal swelling [None]
  - Skin erosion [None]
  - Vulvovaginal burning sensation [None]
  - Vulvovaginal discomfort [None]
  - Vulvovaginal erythema [None]
  - Vulvovaginal pain [None]
